FAERS Safety Report 21037629 (Version 1)
Quarter: 2022Q3

REPORT INFORMATION
  Report Type: Report from Study
  Country: JP (occurrence: JP)
  Receive Date: 20220704
  Receipt Date: 20220704
  Transmission Date: 20221027
  Serious: Yes (Other)
  Sender: FDA-Public Use
  Company Number: JP-ABBVIE-18S-087-2528091-00

PATIENT
  Age: 75 Year
  Sex: Male
  Weight: 52 kg

DRUGS (9)
  1. CARBIDOPA\LEVODOPA [Suspect]
     Active Substance: CARBIDOPA\LEVODOPA
     Indication: Parkinson^s disease
     Dosage: MD: 5.5 ML, CD: 2.8 ML/HR, ED: 1 ML/UNIT
     Route: 050
     Dates: start: 20160921
  2. CARBIDOPA\LEVODOPA [Suspect]
     Active Substance: CARBIDOPA\LEVODOPA
     Dosage: CD INCREASED FROM 2.3ML/HR TO 3.1 ML/HR
     Route: 050
  3. CARBIDOPA\LEVODOPA [Suspect]
     Active Substance: CARBIDOPA\LEVODOPA
     Dosage: MD: 5.5 ML/H CD: 2.7 ML/H ED: 1 ML/H
     Route: 050
     Dates: start: 20180921
  4. CARBIDOPA\LEVODOPA [Suspect]
     Active Substance: CARBIDOPA\LEVODOPA
     Dosage: MD: 5.5 ML CD: 2.3 ML/HR 16 HRS ED: 1 ML/UNIT 3
     Route: 050
  5. ROTIGOTINE [Concomitant]
     Active Substance: ROTIGOTINE
     Indication: Product used for unknown indication
     Route: 062
  6. ROTIGOTINE [Concomitant]
     Active Substance: ROTIGOTINE
     Route: 062
  7. CARBIDOPA HYDRATE LEVODOPA [Concomitant]
     Indication: Product used for unknown indication
     Route: 048
     Dates: start: 200910
  8. CARBIDOPA\LEVODOPA [Concomitant]
     Active Substance: CARBIDOPA\LEVODOPA
     Indication: Product used for unknown indication
     Route: 048
  9. ROTIGOTINE [Concomitant]
     Active Substance: ROTIGOTINE
     Indication: Parkinson^s disease

REACTIONS (10)
  - Depressed level of consciousness [Not Recovered/Not Resolved]
  - Visual impairment [Unknown]
  - Head injury [Unknown]
  - Fall [Unknown]
  - Akinesia [Not Recovered/Not Resolved]
  - Hallucination, visual [Not Recovered/Not Resolved]
  - Hallucination [Not Recovered/Not Resolved]
  - Somnolence [Not Recovered/Not Resolved]
  - Dyskinesia [Not Recovered/Not Resolved]
  - Therapeutic product effect incomplete [Unknown]

NARRATIVE: CASE EVENT DATE: 20181015
